FAERS Safety Report 10103567 (Version 4)
Quarter: 2014Q3

REPORT INFORMATION
  Report Type: Spontaneous
  Country: US (occurrence: US)
  Receive Date: 20140424
  Receipt Date: 20140902
  Transmission Date: 20150326
  Serious: Yes (Other)
  Sender: FDA-Public Use
  Company Number: US-PFIZER INC-2014113321

PATIENT
  Age: 68 Year
  Sex: Female
  Weight: 72.56 kg

DRUGS (3)
  1. XELJANZ [Suspect]
     Active Substance: TOFACITINIB CITRATE
     Indication: RHEUMATOID ARTHRITIS
     Dosage: 5 MG, 2X/DAY
     Route: 048
     Dates: start: 201403, end: 201404
  2. XELJANZ [Suspect]
     Active Substance: TOFACITINIB CITRATE
     Dosage: 5 MG, 2X/DAY
     Route: 048
     Dates: start: 201405, end: 20140614
  3. XELJANZ [Suspect]
     Active Substance: TOFACITINIB CITRATE
     Dosage: UNK
     Dates: start: 201403, end: 20140614

REACTIONS (10)
  - Malaise [Unknown]
  - Influenza like illness [Unknown]
  - Eye pain [Unknown]
  - Tooth infection [Unknown]
  - Pyrexia [Unknown]
  - Facial pain [Unknown]
  - Body temperature increased [Unknown]
  - Pulpitis dental [Recovered/Resolved]
  - Herpes zoster [Unknown]
  - Nasal discomfort [Unknown]

NARRATIVE: CASE EVENT DATE: 201404
